FAERS Safety Report 5840506-1 (Version None)
Quarter: 2008Q3

REPORT INFORMATION
  Report Type: 
  Country: None (occurrence: None)
  Receive Date: 20080811
  Receipt Date: 20080801
  Transmission Date: 20090109
  Serious: Yes (Life-Threatening, Hospitalization, Other)
  Sender: FDA-Public Use
  Company Number: CA-SANOFI-SYNTHELABO-F01200701072

PATIENT
  Sex: Male

DRUGS (9)
  1. FENTANYL [Concomitant]
     Dosage: UNK
  2. BEVACIZUMAB [Suspect]
     Route: 042
     Dates: start: 20060915, end: 20060915
  3. METOPROLOL SUCCINATE [Concomitant]
     Dosage: UNK
  4. LIPITOR [Concomitant]
     Dosage: UNK
  5. ASPIRIN [Concomitant]
     Dosage: UNK
  6. RAMIPRIL [Concomitant]
     Dosage: UNK
  7. LEVOTHYROXINE SODIUM [Concomitant]
     Dosage: UNK
     Dates: start: 20070105
  8. CAPECITABINE [Suspect]
     Dosage: 4300 MG FOR 2 WEEKS, Q3W 4300 MG
     Route: 048
     Dates: start: 20060330, end: 20060413
  9. OXALIPLATIN [Suspect]
     Indication: COLON CANCER
     Route: 042
     Dates: start: 20060330, end: 20060330

REACTIONS (2)
  - ATRIAL FIBRILLATION [None]
  - MYOCARDIAL INFARCTION [None]
